FAERS Safety Report 6081839-6 (Version None)
Quarter: 2009Q1

REPORT INFORMATION
  Report Type: 
  Country: None (occurrence: None)
  Receive Date: 20090218
  Receipt Date: 20080313
  Transmission Date: 20090719
  Serious: No
  Sender: FDA-Public Use
  Company Number: US-BRISTOL-MYERS SQUIBB COMPANY-14114896

PATIENT
  Age: 67 Year

DRUGS (4)
  1. GLUCOPHAGE [Suspect]
     Indication: TYPE 2 DIABETES MELLITUS
  2. THEOPHYLLINE [Concomitant]
  3. ASPIRIN [Concomitant]
  4. CRANBERRY [Concomitant]

REACTIONS (1)
  - WEIGHT INCREASED [None]
